FAERS Safety Report 10515461 (Version 1)
Quarter: 2014Q3

REPORT INFORMATION
  Report Type: Spontaneous
  Country: US (occurrence: None)
  Receive Date: 20140926
  Receipt Date: 20140926
  Transmission Date: 20150326
  Serious: No
  Sender: FDA-Public Use
  Company Number: 1000068682

PATIENT
  Age: 68 Year
  Sex: Female

DRUGS (9)
  1. DICYCLOMIDE HCL (DICYCLOVERINE HYDROCHLORIDE) [Concomitant]
  2. DOXEPIN (DOXEPIN) (DOXEPIN) [Concomitant]
     Active Substance: DOXEPIN
  3. LINZESS [Suspect]
     Active Substance: LINACLOTIDE
     Indication: IRRITABLE BOWEL SYNDROME
     Route: 048
     Dates: start: 201406
  4. INSULIN (INSULIN) [Concomitant]
     Active Substance: INSULIN NOS
  5. QUETIAPINE (QUETIAPINE) [Concomitant]
     Active Substance: QUETIAPINE
  6. CLONAZEPAM (CLONAZEPAM) [Concomitant]
  7. OMEPRAZOLE (OMEPRAZOLE) (OMEPRAZOLE) [Concomitant]
     Active Substance: OMEPRAZOLE
  8. JANUMET (RISTFOR) (RISTFOR) [Concomitant]
  9. PROMETHAZINE [Concomitant]
     Active Substance: PROMETHAZINE\PROMETHAZINE HYDROCHLORIDE

REACTIONS (2)
  - Abdominal pain [None]
  - Nausea [None]

NARRATIVE: CASE EVENT DATE: 20140701
